FAERS Safety Report 5070575-0 (Version None)
Quarter: 2006Q3

REPORT INFORMATION
  Report Type: 
  Country: None (occurrence: None)
  Receive Date: 20060804
  Receipt Date: 20050623
  Transmission Date: 20061208
  Serious: No
  Sender: FDA-Public Use
  Company Number: US-GLAXOSMITHKLINE-A0564083A

PATIENT
  Age: 38 Year
  Sex: Female

DRUGS (1)
  1. EQUATE NICOTINE GUM 4MG [Suspect]
     Dates: start: 20050622

REACTIONS (2)
  - CHEST PAIN [None]
  - HIATUS HERNIA [None]
